FAERS Safety Report 5483999-4 (Version None)
Quarter: 2007Q4

REPORT INFORMATION
  Report Type: 
  Country: None (occurrence: None)
  Receive Date: 20071012
  Receipt Date: 20071004
  Transmission Date: 20080405
  Serious: Yes (Hospitalization)
  Sender: FDA-Public Use
  Company Number: SE-BAXTER-2007BH003978

PATIENT
  Age: 61 Year
  Sex: Male

DRUGS (16)
  1. DIANEAL PD-1 [Suspect]
     Indication: RENAL FAILURE CHRONIC
     Dosage: DOSE UNIT:UNKNOWN
     Route: 033
  2. NUTRINEAL [Suspect]
     Indication: RENAL FAILURE CHRONIC
     Dosage: DOSE UNIT:UNKNOWN
     Route: 033
  3. PHYSIOSOL IN PLASTIC CONTAINER [Suspect]
     Indication: RENAL FAILURE CHRONIC
     Dosage: DOSE UNIT:UNKNOWN
     Route: 033
  4. ATACAND [Concomitant]
  5. METOPROLOL SUCCINATE [Concomitant]
  6. FURIX [Concomitant]
  7. TROMBYL [Concomitant]
  8. ETALPHA [Concomitant]
  9. CALCITUGG [Concomitant]
  10. SIMVASTATIN [Concomitant]
  11. LANSOPRAZOLE [Concomitant]
  12. RESONIUM A [Concomitant]
  13. MOVICOL [Concomitant]
  14. INSULATARD [Concomitant]
  15. ACTRAPID HUMAN [Concomitant]
  16. HEPARIN [Concomitant]
     Indication: PERITONEAL DIALYSIS

REACTIONS (1)
  - PERITONEAL FLUID ANALYSIS ABNORMAL [None]
